FAERS Safety Report 4469493-8 (Version None)
Quarter: 2004Q4

REPORT INFORMATION
  Report Type: 
  Country: None (occurrence: None)
  Receive Date: 20041008
  Receipt Date: 20040927
  Transmission Date: 20050328
  Serious: Yes (Hospitalization)
  Sender: FDA-Public Use
  Company Number: FR-JNJFOC-20040908781

PATIENT
  Age: 94 Year
  Sex: Male

DRUGS (2)
  1. REMINYL [Suspect]
     Route: 049
  2. CORDARONE [Concomitant]
     Route: 065

REACTIONS (2)
  - ATRIAL FIBRILLATION [None]
  - MALAISE [None]
